FAERS Safety Report 9979728 (Version 1)
Quarter: 2014Q1

REPORT INFORMATION
  Report Type: Report from Study
  Country: US (occurrence: US)
  Receive Date: 20140306
  Receipt Date: 20140306
  Transmission Date: 20141002
  Serious: No
  Sender: FDA-Public Use
  Company Number: US-ABBVIE-13P-163-1170376-00

PATIENT
  Age: 50 Year
  Sex: Male
  Weight: 95.34 kg

DRUGS (3)
  1. HUMIRA [Suspect]
     Indication: PSORIASIS
     Route: 058
     Dates: start: 2010, end: 201208
  2. XANAX [Concomitant]
     Indication: ANXIETY
  3. DEPAKOTE [Concomitant]
     Indication: MOOD SWINGS

REACTIONS (2)
  - Psoriasis [Not Recovered/Not Resolved]
  - Arthritis [Unknown]
